FAERS Safety Report 16344966 (Version 1)
Quarter: 2019Q2

REPORT INFORMATION
  Report Type: Spontaneous
  Country: PH (occurrence: PH)
  Receive Date: 20190522
  Receipt Date: 20190522
  Transmission Date: 20190711
  Serious: Yes (Hospitalization, Other)
  Sender: FDA-Public Use
  Company Number: PH-ZYDUS-037043

PATIENT
  Age: 60 Year
  Sex: Male

DRUGS (3)
  1. ALTEPLASE. [Interacting]
     Active Substance: ALTEPLASE
     Indication: BRAIN STEM INFARCTION
     Route: 041
  2. ACETYLSALICYLIC ACID [Concomitant]
     Active Substance: ASPIRIN
     Indication: PRODUCT USED FOR UNKNOWN INDICATION
     Route: 065
  3. LOSARTAN. [Suspect]
     Active Substance: LOSARTAN
     Indication: PRODUCT USED FOR UNKNOWN INDICATION
     Route: 065

REACTIONS (5)
  - Dysarthria [Recovered/Resolved]
  - Drug interaction [Unknown]
  - Swollen tongue [Recovered/Resolved]
  - Angioedema [Recovered/Resolved]
  - Condition aggravated [Recovered/Resolved]
